FAERS Safety Report 9484489 (Version 1)
Quarter: 2013Q3

REPORT INFORMATION
  Report Type: Spontaneous
  Country: US (occurrence: US)
  Receive Date: 20130828
  Receipt Date: 20130828
  Transmission Date: 20140515
  Serious: No
  Sender: FDA-Public Use
  Company Number: US-ABBOTT-13P-163-1094037-00

PATIENT
  Age: 42 Year
  Sex: Male
  Weight: 94.43 kg

DRUGS (2)
  1. ANDROGEL [Suspect]
     Indication: BLOOD TESTOSTERONE DECREASED
     Dates: start: 201303, end: 201304
  2. ANDROGEL [Suspect]
     Dates: start: 201304

REACTIONS (1)
  - Blood testosterone decreased [Unknown]
